FAERS Safety Report 5199238-8 (Version None)
Quarter: 2006Q4

REPORT INFORMATION
  Report Type: 
  Country: None (occurrence: None)
  Receive Date: 20061016
  Receipt Date: 20060723
  Transmission Date: 20070319
  Serious: No
  Sender: FDA-Public Use
  Company Number: 2006SP002791

PATIENT
  Age: 52 Year
  Sex: Male
  Weight: 70.3075 kg

DRUGS (3)
  1. LUNESTA [Suspect]
     Indication: INSOMNIA
     Dosage: 3 MG; HS; ORAL
     Route: 048
     Dates: start: 20060716, end: 20060717
  2. PLAVIX [Concomitant]
  3. METOPROLOL SUCCINATE [Concomitant]

REACTIONS (2)
  - CONFUSIONAL STATE [None]
  - ENURESIS [None]
